FAERS Safety Report 7461501-5 (Version None)
Quarter: 2011Q2

REPORT INFORMATION
  Report Type: 
  Country: None (occurrence: None)
  Receive Date: 20110506
  Receipt Date: 20110504
  Transmission Date: 20111010
  Serious: Yes (Other)
  Sender: FDA-Public Use
  Company Number: US-PFIZER INC-2011096032

PATIENT
  Sex: Female

DRUGS (2)
  1. NORVASC [Suspect]
  2. AMLODIPINE BESYLATE [Suspect]

REACTIONS (1)
  - HEART RATE IRREGULAR [None]
